FAERS Safety Report 7893833-0 (Version None)
Quarter: 2011Q4

REPORT INFORMATION
  Report Type: 
  Country: None (occurrence: None)
  Receive Date: 20111104
  Receipt Date: 20111025
  Transmission Date: 20120403
  Serious: Yes (Hospitalization, Other)
  Sender: FDA-Public Use
  Company Number: CA-US-EMD SERONO, INC.-7091838

PATIENT
  Sex: Female
  Weight: 64 kg

DRUGS (6)
  1. TRAZODONE HCL [Concomitant]
     Indication: INSOMNIA
     Route: 048
     Dates: start: 20090101
  2. NO STUDY MEDICATION [Suspect]
     Indication: MULTIPLE SCLEROSIS
     Route: 048
     Dates: start: 20061206, end: 20061210
  3. SIMVASTATIN [Concomitant]
     Indication: HYPERCHOLESTEROLAEMIA
     Route: 048
     Dates: start: 20100407
  4. PROPRANOLOL [Concomitant]
     Indication: TREMOR
     Route: 048
     Dates: start: 20100908, end: 20110501
  5. REBIF [Suspect]
     Indication: MULTIPLE SCLEROSIS
     Route: 058
     Dates: start: 20090201
  6. LYRICA [Concomitant]
     Indication: PAIN
     Route: 048
     Dates: start: 20080723

REACTIONS (1)
  - CERVIX CARCINOMA STAGE 0 [None]
